FAERS Safety Report 19271485 (Version 1)
Quarter: 2021Q2

REPORT INFORMATION
  Report Type: Other
  Country: CN (occurrence: CN)
  Receive Date: 20210518
  Receipt Date: 20210518
  Transmission Date: 20210717
  Serious: Yes (Hospitalization, Other)
  Sender: FDA-Public Use
  Company Number: CN-ROCHE-2832511

PATIENT

DRUGS (2)
  1. RITUXIMAB. [Suspect]
     Active Substance: RITUXIMAB
     Indication: NEPHROTIC SYNDROME
     Dosage: INDUCTION TREATMENT
     Route: 042
  2. RITUXIMAB. [Suspect]
     Active Substance: RITUXIMAB
     Dosage: MAINTAINING TREATMENT
     Route: 042

REACTIONS (15)
  - Cytomegalovirus viraemia [Unknown]
  - Respiratory tract infection [Unknown]
  - Herpes zoster [Unknown]
  - Gingivitis [Unknown]
  - White blood cell count decreased [Recovered/Resolved]
  - Infection [Unknown]
  - Pneumocystis jirovecii pneumonia [Unknown]
  - Enteritis infectious [Unknown]
  - Bacterial infection [Unknown]
  - Viral infection [Unknown]
  - Pancreatitis acute [Unknown]
  - Urinary tract infection [Unknown]
  - Pneumonia [Unknown]
  - Candida pneumonia [Unknown]
  - Infusion related reaction [Unknown]
